FAERS Safety Report 4576408-0 (Version None)
Quarter: 2005Q1

REPORT INFORMATION
  Report Type: 
  Country: None (occurrence: None)
  Receive Date: 20050119
  Receipt Date: 20040323
  Transmission Date: 20050727
  Serious: Yes (Hospitalization)
  Sender: FDA-Public Use
  Company Number: A03200400907

PATIENT
  Age: 65 Year
  Sex: Female
  Weight: 105.9 kg

DRUGS (10)
  1. PLAVIX [Suspect]
     Indication: PLATELET AGGREGATION INHIBITION
     Dosage: 75 MG QD - ORAL
     Route: 048
     Dates: start: 20040107
  2. ANGIOMAX [Suspect]
     Indication: ANTICOAGULANT THERAPY
     Dosage: INTRAVENOUS NOS
     Route: 042
     Dates: start: 20040107, end: 20040107
  3. FUROSEMIDE [Concomitant]
     Indication: STENT PLACEMENT
  4. ATENOLOL [Concomitant]
  5. AMLODIPINE BESYLATE [Concomitant]
  6. LISINOPRIL [Concomitant]
  7. SIMVASTATIN [Concomitant]
  8. ACETYLSALICYLIC ACID [Concomitant]
  9. OMEPRAZOLE [Concomitant]
  10. SIROLIMUS [Concomitant]

REACTIONS (2)
  - ANAEMIA [None]
  - LOBAR PNEUMONIA [None]
